FAERS Safety Report 7098572-4 (Version None)
Quarter: 2010Q4

REPORT INFORMATION
  Report Type: 
  Country: None (occurrence: None)
  Receive Date: 20101112
  Receipt Date: 20101104
  Transmission Date: 20110411
  Serious: Yes (Hospitalization, Other)
  Sender: FDA-Public Use
  Company Number: PHHO2010DE14738

PATIENT
  Sex: Male
  Weight: 88.1 kg

DRUGS (9)
  1. BLINDED ALISKIREN ALI+TAB+CF [Suspect]
     Dosage: CODE NOT BROKEN
     Route: 048
     Dates: start: 20100428, end: 20100926
  2. ENALAPRIL MALEATE [Suspect]
     Dosage: CODE NOT BROKEN
     Route: 048
     Dates: start: 20100428, end: 20100926
  3. BLINDED NO TREATMENT RECEIVED NOMED [Suspect]
     Dosage: CODE NOT BROKEN
     Route: 048
     Dates: start: 20100428, end: 20100926
  4. COMPARATOR ENALAPRIL [Suspect]
     Indication: CARDIAC FAILURE
  5. ALISKIREN [Suspect]
     Indication: CARDIAC FAILURE
  6. BISOPROLOL FUMARATE [Suspect]
     Indication: CARDIAC FAILURE CONGESTIVE
  7. TORASEMIDE SODIUM [Suspect]
  8. SPIRONOLACTONE [Suspect]
  9. PHENPROCOUMON [Concomitant]
     Indication: ATRIAL FIBRILLATION

REACTIONS (11)
  - BLOOD CREATININE INCREASED [None]
  - CARDIAC FAILURE [None]
  - CARDIAC FAILURE CONGESTIVE [None]
  - CONGESTIVE CARDIOMYOPATHY [None]
  - DECREASED APPETITE [None]
  - DISEASE PROGRESSION [None]
  - DYSPNOEA [None]
  - FATIGUE [None]
  - HEPATIC ENZYME INCREASED [None]
  - HYPOTENSION [None]
  - RIGHT VENTRICULAR FAILURE [None]
